FAERS Safety Report 8439325 (Version 2)
Quarter: 2013Q2

REPORT INFORMATION
  Report Type: Spontaneous
  Country: US (occurrence: None)
  Receive Date: 20120104
  Receipt Date: 20120508
  Transmission Date: 20140414
  Serious: No
  Sender: FDA-Public Use
  Company Number: 2011HGS-002895

PATIENT
  Age: 61 Year
  Sex: Female
  Weight: 84.82 kg

DRUGS (18)
  1. BENLYSTA [Suspect]
     Indication: SYSTEMIC LUPUS ERYTHEMATOSUS
     Route: 041
     Dates: start: 20111018
  2. PLAQUENIL (HYDROXYCHLOROQUINE SULFATE) (HYDROXYCHLOROQUINE SULFATE) [Concomitant]
  3. CELLCEPT (MYOCPHENOLATE MOFETIL) (MYCOPHENOLATE MOFETIL) [Concomitant]
  4. NEURONTIN [Concomitant]
  5. PLAVIX [Concomitant]
  6. VITAMIN D (ERGOCALCIFEROL) (ERGOCALCIFEROL) [Concomitant]
  7. LISINOPRIL [Concomitant]
  8. LIPITOR [Concomitant]
  9. AMITRIPTYLINE (AMITRIPTYLINE) (AMITRIPTYLINE) [Concomitant]
  10. SINGULAIR [Concomitant]
  11. NEXIUM [Concomitant]
  12. EVOXAC [Concomitant]
  13. SINEMET (SINEMET) (LEVODOPA, CARBIDOPA) [Concomitant]
  14. EFFEXOR XR (VENLAFAXINE HYDROCHLORIDE) (VENLAFAXINE HYDROCHLORIDE) [Concomitant]
  15. MULTIVITAMIN (MULTIVITAMINS) (ERGOCALCIFEROL, ASCORBIC ACID, FOLIC ACID, THIAMINE HYDROCHLORIDE, RET [Concomitant]
  16. ADVAIR HFA (SERETIDE) (FLUTICASONE PROPIONATE, SALMETEROL XINAFOATE) [Concomitant]
  17. FENTANYL (FENTANYL) (FENTANYL) [Concomitant]
  18. PERCOCET (TYLOX /00446701/) (PARACETAMOL, OXYCODONE HYDROCHLORIDE, OXYCODONE TEREPHTHALATE) [Concomitant]

REACTIONS (2)
  - RESPIRATORY TRACT CONGESTION [None]
  - Pyrexia [None]
